FAERS Safety Report 4454314-X (Version None)
Quarter: 2004Q3

REPORT INFORMATION
  Report Type: 
  Country: None (occurrence: None)
  Receive Date: 20040916
  Receipt Date: 20040916
  Transmission Date: 20050211
  Serious: Yes (Life-Threatening, Hospitalization)
  Sender: FDA-Public Use
  Company Number: None

PATIENT
  Age: 54 Year
  Sex: Male
  Weight: 86.7 kg

DRUGS (7)
  1. ATRACURIUM [Suspect]
  2. OMEPRAZOLE [Concomitant]
  3. AMITRIPTYLINE HCL [Concomitant]
  4. LORAZEPAM [Concomitant]
  5. ALBUTEROL / IPRATROPIUM [Concomitant]
  6. NICOTINE [Concomitant]
  7. MORPHINE [Concomitant]

REACTIONS (2)
  - BRONCHOSPASM [None]
  - RESPIRATORY DISTRESS [None]
